FAERS Safety Report 11114149 (Version 4)
Quarter: 2015Q4

REPORT INFORMATION
  Report Type: Report from Study
  Country: AU (occurrence: AU)
  Receive Date: 20150514
  Receipt Date: 20151028
  Transmission Date: 20160304
  Serious: Yes (Other)
  Sender: FDA-Public Use
  Company Number: PHHY2015AU044681

PATIENT
  Age: 19 Year
  Sex: Male
  Weight: 84 kg

DRUGS (6)
  1. CLOZARIL [Suspect]
     Active Substance: CLOZAPINE
     Dosage: 150 MG, (50 MG MANE AND 100 MG NOCTE)
     Route: 048
     Dates: start: 20150413
  2. OLANZAPINE. [Concomitant]
     Active Substance: OLANZAPINE
     Dosage: 15 MG, QHS (NOCTE)
     Route: 065
  3. CLOZARIL [Suspect]
     Active Substance: CLOZAPINE
     Dosage: 200 MG, (150 MG NOCTE AND 50 MG MANE DAILY)
     Route: 048
     Dates: start: 20150318
  4. CLOZARIL [Suspect]
     Active Substance: CLOZAPINE
     Dosage: 125 MG, QD
     Route: 048
  5. CLOZARIL [Suspect]
     Active Substance: CLOZAPINE
     Indication: SCHIZOPHRENIA
     Dosage: UNK
     Route: 048
  6. OLANZAPINE. [Concomitant]
     Active Substance: OLANZAPINE
     Indication: PRODUCT USED FOR UNKNOWN INDICATION
     Dosage: 30 MG, UNK
     Route: 065

REACTIONS (17)
  - Chest pain [Recovered/Resolved]
  - Blood alkaline phosphatase increased [Unknown]
  - Ventricular hypertrophy [Unknown]
  - Antipsychotic drug level decreased [Unknown]
  - Hallucination [Recovering/Resolving]
  - Apathy [Unknown]
  - Blood cholesterol increased [Unknown]
  - Hyperhidrosis [Unknown]
  - Bundle branch block right [Unknown]
  - Arrhythmia [Unknown]
  - Palpitations [Not Recovered/Not Resolved]
  - Tricuspid valve incompetence [Unknown]
  - Blood glucose increased [Unknown]
  - Dyspnoea [Recovered/Resolved]
  - Mitral valve incompetence [Unknown]
  - Sinus tachycardia [Unknown]
  - Dizziness [Unknown]

NARRATIVE: CASE EVENT DATE: 20150407
